FAERS Safety Report 16609236 (Version 1)
Quarter: 2019Q3

REPORT INFORMATION
  Report Type: Spontaneous
  Country: US (occurrence: US)
  Receive Date: 20190720
  Receipt Date: 20190720
  Transmission Date: 20191004
  Serious: Yes (Disabling, Other)
  Sender: FDA-Public Use
  Company Number: None

PATIENT
  Age: 51 Year
  Sex: Female
  Weight: 57.6 kg

DRUGS (2)
  1. MIRALAX [Suspect]
     Active Substance: POLYETHYLENE GLYCOL 3350
     Indication: CONSTIPATION
     Dosage: ?          QUANTITY:14 17G;?
     Route: 048
  2. SYNTHROID [Concomitant]
     Active Substance: LEVOTHYROXINE SODIUM

REACTIONS (10)
  - Abdominal distension [None]
  - Fatigue [None]
  - Vomiting [None]
  - Blood glucose increased [None]
  - Arthralgia [None]
  - Glucose tolerance impaired [None]
  - Insomnia [None]
  - Nausea [None]
  - Night sweats [None]
  - Confusional state [None]

NARRATIVE: CASE EVENT DATE: 20170620
